FAERS Safety Report 7183292-8 (Version None)
Quarter: 2010Q4

REPORT INFORMATION
  Report Type: 
  Country: None (occurrence: None)
  Receive Date: 20101222
  Receipt Date: 20100722
  Transmission Date: 20110411
  Serious: No
  Sender: FDA-Public Use
  Company Number: A0868959A

PATIENT
  Age: 46 Year
  Sex: Male
  Weight: 100 kg

DRUGS (2)
  1. FLONASE [Suspect]
     Indication: MULTIPLE ALLERGIES
     Route: 045
     Dates: start: 20100301
  2. MULTIPLE MEDICATIONS [Concomitant]

REACTIONS (3)
  - EYE IRRITATION [None]
  - EYE PRURITUS [None]
  - SENSATION OF FOREIGN BODY [None]
